FAERS Safety Report 9457004 (Version 1)
Quarter: 2013Q3

REPORT INFORMATION
  Report Type: Spontaneous
  Country: US (occurrence: US)
  Receive Date: 20130814
  Receipt Date: 20130814
  Transmission Date: 20140515
  Serious: No
  Sender: FDA-Public Use
  Company Number: US-009507513-1308USA005375

PATIENT
  Age: 21 Year
  Sex: Female
  Weight: 70.3 kg

DRUGS (1)
  1. NUVARING [Suspect]
     Indication: MENSTRUAL CYCLE MANAGEMENT
     Dosage: 1 RING 3 WEEK ON AND 1 WEEK OFF
     Route: 067
     Dates: start: 201112

REACTIONS (4)
  - Vaginal discharge [Not Recovered/Not Resolved]
  - Device expulsion [Unknown]
  - Poor quality drug administered [Unknown]
  - Product quality issue [Unknown]
